FAERS Safety Report 8984105 (Version 1)
Quarter: 2012Q4

REPORT INFORMATION
  Report Type: Spontaneous
  Country: US (occurrence: None)
  Receive Date: 20121213
  Receipt Date: 20121213
  Transmission Date: 20130627
  Serious: Yes (Death)
  Sender: FDA-Public Use
  Company Number: JPI-P-026750

PATIENT
  Age: 42 Year
  Sex: Male

DRUGS (1)
  1. XYREM [Suspect]
     Indication: SLEEP DISORDER NOS
     Dosage: 6 gm (3 gm, 2 in 1d), oral
     Route: 048
     Dates: start: 20120702

REACTIONS (10)
  - Headache [None]
  - Dizziness [None]
  - Chest discomfort [None]
  - Insomnia [None]
  - Cardiac flutter [None]
  - Blood pressure decreased [None]
  - Heart rate increased [None]
  - Nervousness [None]
  - Sensory disturbance [None]
  - No therapeutic response [None]
